FAERS Safety Report 4886214-5 (Version None)
Quarter: 2006Q1

REPORT INFORMATION
  Report Type: 
  Country: None (occurrence: None)
  Receive Date: 20060118
  Receipt Date: 20060106
  Transmission Date: 20060701
  Serious: Yes (Hospitalization)
  Sender: FDA-Public Use
  Company Number: 220893

PATIENT
  Age: 69 Year
  Sex: Male
  Weight: 48 kg

DRUGS (9)
  1. AVASTIN [Suspect]
     Indication: OESOPHAGEAL CARCINOMA
     Dosage: 5 MG/KG, DAYS 1+15, INTRAVENOUS
     Route: 042
     Dates: start: 20051116, end: 20051228
  2. DOCETAXEL (DOCETAXEL) [Suspect]
     Indication: OESOPHAGEAL CARCINOMA
     Dosage: 30 MG/M2, DAYS 1,8, 15, INTRAVENOUS
     Route: 042
     Dates: start: 20051116, end: 20051228
  3. ATIVAN [Concomitant]
  4. COMPAZINE [Concomitant]
  5. DECADRON [Concomitant]
  6. LACTULOSE [Concomitant]
  7. MEGACE [Concomitant]
  8. MIRALAX [Concomitant]
  9. MS CONTIN [Concomitant]

REACTIONS (7)
  - ABSCESS [None]
  - BLOOD ALBUMIN DECREASED [None]
  - CULTURE URINE POSITIVE [None]
  - DEVICE FAILURE [None]
  - OSTEOMYELITIS [None]
  - PROTEIN TOTAL DECREASED [None]
  - STAPHYLOCOCCAL INFECTION [None]
